FAERS Safety Report 20196288 (Version 2)
Quarter: 2021Q4

REPORT INFORMATION
  Report Type: Spontaneous
  Country: US (occurrence: US)
  Receive Date: 20211216
  Receipt Date: 20211231
  Transmission Date: 20220303
  Serious: Yes (Hospitalization, Other)
  Sender: FDA-Public Use
  Company Number: US-TEVA-2021-US-1986965

PATIENT
  Age: 57 Year
  Sex: Male

DRUGS (7)
  1. MYCOPHENOLATE MOFETIL [Suspect]
     Active Substance: MYCOPHENOLATE MOFETIL
     Indication: Immunosuppressant drug therapy
     Route: 065
  2. PREDNISONE [Suspect]
     Active Substance: PREDNISONE
     Indication: Immunosuppressant drug therapy
     Route: 065
  3. TACROLIMUS [Suspect]
     Active Substance: TACROLIMUS
     Indication: Immunosuppressant drug therapy
     Route: 065
  4. CYTOXAN [Concomitant]
     Active Substance: CYCLOPHOSPHAMIDE
     Indication: Post transplant lymphoproliferative disorder
     Dosage: ADMINISTERED AS PER STANDARD DE-ESCALATION SCHEDULE AS WEEKLY FOR 8 DOSES FOLLOWED BY 2 WEEKLY DOSES
     Route: 065
  5. CYTOXAN [Concomitant]
     Active Substance: CYCLOPHOSPHAMIDE
     Indication: Plasmablastic lymphoma
  6. DEXAMETHASONE [Concomitant]
     Active Substance: DEXAMETHASONE
     Indication: Post transplant lymphoproliferative disorder
     Dosage: ADMINISTERED AS PER STANDARD DE-ESCALATION SCHEDULE AS WEEKLY FOR 8 DOSES FOLLOWED BY 2 WEEKLY DOSES
     Route: 065
  7. DEXAMETHASONE [Concomitant]
     Active Substance: DEXAMETHASONE
     Indication: Plasmablastic lymphoma

REACTIONS (5)
  - Post transplant lymphoproliferative disorder [Recovering/Resolving]
  - Plasmablastic lymphoma [Recovering/Resolving]
  - Toxicity to various agents [Unknown]
  - Ascites [Recovering/Resolving]
  - Chronic kidney disease [Unknown]
